FAERS Safety Report 14272603 (Version 2)
Quarter: 2018Q1

REPORT INFORMATION
  Report Type: Report from Study
  Country: IT (occurrence: IT)
  Receive Date: 20171212
  Receipt Date: 20180102
  Transmission Date: 20180508
  Serious: Yes (Death)
  Sender: FDA-Public Use
  Company Number: IT-VIFOR (INTERNATIONAL) INC.-VIT-2017-13309

PATIENT
  Sex: Male
  Weight: 68.3 kg

DRUGS (6)
  1. ASCRIPTIN [Concomitant]
     Active Substance: ASPIRIN
     Indication: CONGENITAL CYSTIC KIDNEY DISEASE
     Dates: start: 20150807
  2. IDRACAL [Concomitant]
     Indication: CONGENITAL CYSTIC KIDNEY DISEASE
     Dates: start: 20170313
  3. VELPHORO [Suspect]
     Active Substance: FERRIC OXYHYDROXIDE
     Indication: HYPERPHOSPHATAEMIA
     Route: 048
     Dates: start: 20171002, end: 20171126
  4. EPOETIN ALFA [Concomitant]
     Active Substance: ERYTHROPOIETIN
     Indication: CONGENITAL CYSTIC KIDNEY DISEASE
     Dates: start: 20170613
  5. FERLIXIT [Concomitant]
     Active Substance: SODIUM FERRIC GLUCONATE COMPLEX
     Indication: CONGENITAL CYSTIC KIDNEY DISEASE
     Dates: start: 20170217
  6. ROCALTROL [Concomitant]
     Active Substance: CALCITRIOL
     Indication: CONGENITAL CYSTIC KIDNEY DISEASE
     Dates: start: 20160613

REACTIONS (1)
  - Neoplasm malignant [Fatal]

NARRATIVE: CASE EVENT DATE: 20171127
